FAERS Safety Report 7235573-7 (Version None)
Quarter: 2011Q1

REPORT INFORMATION
  Report Type: 
  Country: None (occurrence: None)
  Receive Date: 20110120
  Receipt Date: 20110113
  Transmission Date: 20110831
  Serious: Yes (Death, Other)
  Sender: FDA-Public Use
  Company Number: PHHY2009US66752

PATIENT
  Sex: Female
  Weight: 86.168 kg

DRUGS (1)
  1. EXJADE [Suspect]
     Indication: MYELODYSPLASTIC SYNDROME
     Dosage: 500 MG, BID
     Route: 048
     Dates: start: 20071001, end: 20091014

REACTIONS (3)
  - DEATH [None]
  - BONE MARROW TRANSPLANT [None]
  - DIARRHOEA [None]
